FAERS Safety Report 19076992 (Version 1)
Quarter: 2021Q1

REPORT INFORMATION
  Report Type: Spontaneous
  Country: LB (occurrence: LB)
  Receive Date: 20210331
  Receipt Date: 20210331
  Transmission Date: 20210420
  Serious: Yes (Disabling)
  Sender: FDA-Public Use
  Company Number: NVSC2021LB066778

PATIENT
  Age: 23 Year
  Sex: Male
  Weight: 51 kg

DRUGS (2)
  1. LUSPATERCEPT. [Concomitant]
     Active Substance: LUSPATERCEPT
     Indication: PRODUCT USED FOR UNKNOWN INDICATION
     Dosage: UNK
     Route: 065
  2. DESFERAL [Suspect]
     Active Substance: DEFEROXAMINE MESYLATE
     Indication: THALASSAEMIA BETA
     Dosage: UNK
     Route: 042

REACTIONS (1)
  - Myelopathy [Recovered/Resolved]

NARRATIVE: CASE EVENT DATE: 20201126
